FAERS Safety Report 13539372 (Version 1)
Quarter: 2017Q2

REPORT INFORMATION
  Report Type: Spontaneous
  Country: US (occurrence: US)
  Receive Date: 20170512
  Receipt Date: 20170512
  Transmission Date: 20170830
  Serious: Yes (Hospitalization, Disabling)
  Sender: FDA-Public Use
  Company Number: None

PATIENT

DRUGS (1)
  1. PROLIXIN [Suspect]
     Active Substance: FLUPHENAZINE HYDROCHLORIDE

REACTIONS (8)
  - Hallucination, auditory [None]
  - Mental disorder [None]
  - Speech disorder [None]
  - Thinking abnormal [None]
  - Affective disorder [None]
  - Headache [None]
  - Abulia [None]
  - Surgery [None]
